FAERS Safety Report 13873809 (Version 1)
Quarter: 2017Q3

REPORT INFORMATION
  Report Type: Spontaneous
  Country: GB (occurrence: GB)
  Receive Date: 20170816
  Receipt Date: 20170816
  Transmission Date: 20171127
  Serious: Yes (Hospitalization)
  Sender: FDA-Public Use
  Company Number: GB-TEVA-795238ACC

PATIENT
  Age: 65 Year
  Sex: Female

DRUGS (16)
  1. ALLOPURINOL. [Concomitant]
     Active Substance: ALLOPURINOL
  2. FERROUS SULFATE. [Concomitant]
     Active Substance: FERROUS SULFATE
  3. WARFARIN [Concomitant]
     Active Substance: WARFARIN
  4. ALENDRONIC ACID [Concomitant]
     Active Substance: ALENDRONIC ACID
  5. ATORVASTATIN [Concomitant]
     Active Substance: ATORVASTATIN
  6. CARBAMAZEPINE. [Concomitant]
     Active Substance: CARBAMAZEPINE
  7. ADCAL-D3 [Concomitant]
     Active Substance: CALCIUM CARBONATE\CHOLECALCIFEROL
  8. AMLODIPINE [Concomitant]
     Active Substance: AMLODIPINE BESYLATE
  9. DOXAZOSIN [Concomitant]
     Active Substance: DOXAZOSIN\DOXAZOSIN MESYLATE
  10. CIPROFLOXACIN. [Suspect]
     Active Substance: CIPROFLOXACIN
     Indication: URINARY TRACT INFECTION
     Dosage: 1000 MILLIGRAM DAILY;
     Route: 048
  11. CLOBAZAM [Concomitant]
     Active Substance: CLOBAZAM
  12. RAMIPRIL. [Concomitant]
     Active Substance: RAMIPRIL
  13. BISOPROLOL [Concomitant]
     Active Substance: BISOPROLOL
  14. FOLIC ACID. [Concomitant]
     Active Substance: FOLIC ACID
  15. LINAGLIPTIN [Concomitant]
     Active Substance: LINAGLIPTIN
  16. SULFASALAZINE. [Concomitant]
     Active Substance: SULFASALAZINE

REACTIONS (4)
  - Focal dyscognitive seizures [Recovered/Resolved with Sequelae]
  - Somnolence [Unknown]
  - Vomiting [Unknown]
  - Lethargy [Unknown]
